FAERS Safety Report 12715625 (Version 3)
Quarter: 2016Q4

REPORT INFORMATION
  Report Type: Report from Study
  Country: US (occurrence: US)
  Receive Date: 20160906
  Receipt Date: 20161004
  Transmission Date: 20170207
  Serious: Yes (Hospitalization)
  Sender: FDA-Public Use
  Company Number: US-GILEAD-2016-0228198

PATIENT
  Age: 79 Year
  Sex: Female
  Weight: 68.48 kg

DRUGS (25)
  1. NORVASC [Concomitant]
     Active Substance: AMLODIPINE BESYLATE
  2. ZOFRAN [Concomitant]
     Active Substance: ONDANSETRON HYDROCHLORIDE
  3. PROTONIX                           /00661201/ [Concomitant]
     Active Substance: OMEPRAZOLE
  4. K-LOR [Concomitant]
     Active Substance: POTASSIUM CHLORIDE
  5. AMBRISENTAN [Suspect]
     Active Substance: AMBRISENTAN
     Indication: PULMONARY HYPERTENSION
     Dosage: 10 MG, QD
     Route: 048
     Dates: start: 20160811
  6. TYVASO [Suspect]
     Active Substance: TREPROSTINIL
     Dosage: 7 DF, QID
     Route: 055
  7. GABAPENTIN. [Concomitant]
     Active Substance: GABAPENTIN
  8. BUMETANIDE. [Concomitant]
     Active Substance: BUMETANIDE
  9. PNEUMOCOCCAL 13 VALENT VACCINE [Concomitant]
     Active Substance: PNEUMOCOCCAL 13-VALENT CONJUGATE VACCINE
  10. SPIRONOLACTONE. [Concomitant]
     Active Substance: SPIRONOLACTONE
  11. TYVASO [Suspect]
     Active Substance: TREPROSTINIL
     Dosage: 42 UG, QID
     Route: 055
  12. ASPIRIN                            /00002701/ [Concomitant]
     Active Substance: ASPIRIN
  13. DEXILANT [Concomitant]
     Active Substance: DEXLANSOPRAZOLE
  14. SILDENAFIL. [Concomitant]
     Active Substance: SILDENAFIL
  15. AMBRISENTAN [Suspect]
     Active Substance: AMBRISENTAN
     Indication: SCLERODERMA
  16. LOVENOX [Concomitant]
     Active Substance: ENOXAPARIN SODIUM
  17. ROXICODONE [Concomitant]
     Active Substance: OXYCODONE HYDROCHLORIDE
  18. ROCALTROL [Concomitant]
     Active Substance: CALCITRIOL
  19. PERCOCET                           /00446701/ [Concomitant]
     Active Substance: ACETAMINOPHEN\OXYCODONE HYDROCHLORIDE\OXYCODONE TEREPHTHALATE
  20. TYVASO [Suspect]
     Active Substance: TREPROSTINIL
     Indication: PULMONARY HYPERTENSION
     Dosage: 6 DF, QID
     Route: 055
     Dates: start: 20160805
  21. VITAMINE D [Concomitant]
  22. OXYGEN. [Concomitant]
     Active Substance: OXYGEN
  23. TYVASO [Suspect]
     Active Substance: TREPROSTINIL
     Dosage: 36 UG, QID
     Route: 055
  24. ADCIRCA [Concomitant]
     Active Substance: TADALAFIL
  25. MAGNESIUM SULFATE. [Concomitant]
     Active Substance: MAGNESIUM SULFATE

REACTIONS (11)
  - Lung disorder [Unknown]
  - Dyspnoea [Unknown]
  - Nausea [Unknown]
  - Oxygen consumption increased [Unknown]
  - Headache [Recovering/Resolving]
  - Cough [Unknown]
  - Cardiac disorder [Unknown]
  - Fatigue [Unknown]
  - Malaise [Unknown]
  - Throat irritation [Unknown]
  - Visual impairment [Unknown]

NARRATIVE: CASE EVENT DATE: 201608
